FAERS Safety Report 5403012-4 (Version None)
Quarter: 2007Q3

REPORT INFORMATION
  Report Type: 
  Country: None (occurrence: None)
  Receive Date: 20070801
  Receipt Date: 20070727
  Transmission Date: 20080115
  Serious: No
  Sender: FDA-Public Use
  Company Number: DE-ASTRAZENECA-2007PK01590

PATIENT
  Age: 9519 Day
  Sex: Male
  Weight: 87 kg

DRUGS (14)
  1. SEROQUEL [Suspect]
     Dosage: 100 MG TO 400 MG
     Route: 048
     Dates: start: 20070302, end: 20070308
  2. SEROQUEL [Suspect]
     Route: 048
     Dates: start: 20070309, end: 20070327
  3. SEROQUEL [Suspect]
     Route: 048
     Dates: start: 20070328, end: 20070402
  4. SEROQUEL [Suspect]
     Route: 048
     Dates: start: 20070403, end: 20070417
  5. SEROQUEL [Suspect]
     Route: 048
     Dates: start: 20070418
  6. TAVOR [Concomitant]
     Indication: SEDATION
     Route: 048
     Dates: start: 20070227, end: 20070305
  7. TAVOR [Concomitant]
     Route: 048
     Dates: start: 20070306, end: 20070307
  8. TAVOR [Concomitant]
     Route: 048
     Dates: start: 20070308, end: 20070309
  9. TAVOR [Concomitant]
     Route: 048
     Dates: start: 20070310, end: 20070312
  10. HOGGAR NIGHT [Concomitant]
     Indication: SLEEP DISORDER
     Route: 048
     Dates: start: 20070225, end: 20070225
  11. BACHBLUETEN [Concomitant]
     Indication: SEDATION
     Dosage: 2-3 TIMES PER DAY 12 GTT
     Route: 048
     Dates: start: 20070223, end: 20070224
  12. MAGNESIUM SULFATE [Concomitant]
     Dates: start: 20020101, end: 20070531
  13. ASPIRIN [Concomitant]
     Dates: start: 20040101, end: 20060101
  14. BALDRIAN [Concomitant]
     Dates: start: 20070223, end: 20070226

REACTIONS (2)
  - LEUKOPENIA [None]
  - NEUTROPENIA [None]
